FAERS Safety Report 13071182 (Version 9)
Quarter: 2017Q2

REPORT INFORMATION
  Report Type: Report from Study
  Country: FR (occurrence: FR)
  Receive Date: 20161229
  Receipt Date: 20170522
  Transmission Date: 20170830
  Serious: Yes (Death, Life-Threatening, Hospitalization, Other)
  Sender: FDA-Public Use
  Company Number: FR-B.I. PHARMACEUTICALS,INC./RIDGEFIELD-2016-BI-086950

PATIENT
  Age: 34 Year
  Sex: Female
  Weight: 51 kg

DRUGS (11)
  1. CEFTRIAXONE. [Concomitant]
     Active Substance: CEFTRIAXONE
     Indication: SEPSIS
     Route: 042
     Dates: start: 20161221, end: 20161224
  2. MEROPENAM [Concomitant]
     Indication: SEPSIS
     Route: 042
     Dates: start: 20161228, end: 20170106
  3. ERYTHROMYCINE [Concomitant]
     Active Substance: ERYTHROMYCIN
     Indication: SEPSIS
     Route: 042
     Dates: start: 20161227, end: 20161227
  4. BIBF 1120 [Suspect]
     Active Substance: NINTEDANIB
     Indication: SCLERODERMA
     Route: 048
     Dates: start: 20160824
  5. VANCOMYCINE [Concomitant]
     Active Substance: VANCOMYCIN
     Indication: SEPSIS
     Route: 042
     Dates: start: 20161228, end: 20170106
  6. MYCOPHENOLATE MOFETIL. [Concomitant]
     Active Substance: MYCOPHENOLATE MOFETIL
     Indication: SCLERODERMA
     Route: 048
     Dates: start: 201509
  7. PREDNISONE. [Concomitant]
     Active Substance: PREDNISONE
     Indication: SCLERODERMA
     Route: 048
     Dates: start: 2012
  8. DILTIAZEM. [Concomitant]
     Active Substance: DILTIAZEM
     Indication: SCLERODERMA
     Route: 048
     Dates: start: 2012
  9. ESOMEPRAZOLE [Concomitant]
     Active Substance: ESOMEPRAZOLE
     Indication: GASTROOESOPHAGEAL REFLUX DISEASE
     Route: 048
     Dates: start: 2012, end: 20161220
  10. GENTAMYCINE [Concomitant]
     Active Substance: GENTAMICIN
     Indication: SEPSIS
     Route: 042
     Dates: start: 20161228, end: 20161228
  11. TAZOCILINE [Concomitant]
     Indication: SEPSIS
     Route: 042
     Dates: start: 20161224, end: 20161228

REACTIONS (12)
  - Lung disorder [Recovered/Resolved]
  - Pneumothorax [Unknown]
  - Quadriplegia [Unknown]
  - Sepsis [Recovered/Resolved]
  - Scleroderma renal crisis [Fatal]
  - Thrombotic microangiopathy [Fatal]
  - Vena cava thrombosis [Unknown]
  - Cardiac arrest [Recovered/Resolved]
  - Acute kidney injury [Unknown]
  - Subileus [Recovered/Resolved]
  - Pneumonia [Recovered/Resolved]
  - Hemiplegia [Unknown]

NARRATIVE: CASE EVENT DATE: 20161220
